FAERS Safety Report 7954707-X (Version None)
Quarter: 2011Q4

REPORT INFORMATION
  Report Type: 
  Country: None (occurrence: None)
  Receive Date: 20111202
  Receipt Date: 20111128
  Transmission Date: 20120403
  Serious: Yes (Hospitalization)
  Sender: FDA-Public Use
  Company Number: DE-ABBOTT-11P-062-0878116-00

PATIENT
  Age: 25 Year
  Sex: Male

DRUGS (2)
  1. HUMIRA [Suspect]
     Indication: COLITIS ULCERATIVE
     Dosage: FIRST DOSE 80 MG, 40 MG THEREAFTER IN SECOND WEEK
     Route: 058
     Dates: start: 20111103, end: 20111110
  2. AZATHIOPRINE [Concomitant]
     Indication: PRODUCT USED FOR UNKNOWN INDICATION

REACTIONS (4)
  - PYREXIA [None]
  - ASTHENIA [None]
  - LEUKOPENIA [None]
  - ANAEMIA [None]
